FAERS Safety Report 10589321 (Version 1)
Quarter: 2014Q4

REPORT INFORMATION
  Report Type: Spontaneous
  Country: US (occurrence: US)
  Receive Date: 20141118
  Receipt Date: 20141118
  Transmission Date: 20150529
  Serious: Yes (Other)
  Sender: FDA-Public Use
  Company Number: US-AUROBINDO-AUR-APL-2014-11970

PATIENT
  Sex: Male

DRUGS (12)
  1. WARFARIN [Suspect]
     Active Substance: WARFARIN
     Indication: PRODUCT USED FOR UNKNOWN INDICATION
     Dosage: 7 MG, AT BED TIME OR AS DIRECTED
     Route: 065
  2. DIGOXIN. [Suspect]
     Active Substance: DIGOXIN
     Indication: PRODUCT USED FOR UNKNOWN INDICATION
     Dosage: 125 ?G, ONCE A DAY
     Route: 048
  3. TYLENOL [Suspect]
     Active Substance: ACETAMINOPHEN
     Indication: ARTHRITIS
     Dosage: 2 DF, TWO TIMES A DAY
     Route: 048
  4. TRAMADOL [Suspect]
     Active Substance: TRAMADOL
     Indication: PRODUCT USED FOR UNKNOWN INDICATION
     Dosage: 100 MG, 3 TIMES A DAY
     Route: 065
  5. ASPIRIN. [Suspect]
     Active Substance: ASPIRIN
     Indication: PRODUCT USED FOR UNKNOWN INDICATION
     Dosage: 81 MG, ONCE A DAY
     Route: 048
  6. SERTRALINE [Suspect]
     Active Substance: SERTRALINE HYDROCHLORIDE
     Indication: PRODUCT USED FOR UNKNOWN INDICATION
     Dosage: 150 MG, ONCE A DAY
     Route: 048
  7. FLORINEF ACETATE [Suspect]
     Active Substance: FLUDROCORTISONE ACETATE
     Indication: PRODUCT USED FOR UNKNOWN INDICATION
     Dosage: 0.1 MG, ONCE A DAY
     Route: 048
  8. METOCLOPRAMIDE HCL [Suspect]
     Active Substance: METOCLOPRAMIDE HYDROCHLORIDE
     Indication: PRODUCT USED FOR UNKNOWN INDICATION
     Dosage: 5 MG, FOUR TIMES/DAY
     Route: 048
  9. GABAPENTIN 400MG [Suspect]
     Active Substance: GABAPENTIN
     Indication: PRODUCT USED FOR UNKNOWN INDICATION
     Dosage: 400 MG, FOUR TIMES/DAY
     Route: 048
  10. OMEPRAZOLE. [Suspect]
     Active Substance: OMEPRAZOLE
     Indication: PRODUCT USED FOR UNKNOWN INDICATION
     Dosage: 20 MG, ONCE A DAY
     Route: 048
  11. LEVOTHYROXINE SODIUM. [Suspect]
     Active Substance: LEVOTHYROXINE SODIUM
     Indication: PRODUCT USED FOR UNKNOWN INDICATION
     Dosage: 150 ?G, ONCE A DAY
     Route: 048
  12. PRAVASTATIN                        /00880402/ [Suspect]
     Active Substance: PRAVASTATIN SODIUM
     Indication: PRODUCT USED FOR UNKNOWN INDICATION
     Dosage: 20 MG, ONCE A DAY
     Route: 048

REACTIONS (2)
  - Orthostatic hypotension [Unknown]
  - Syncope [Unknown]
